FAERS Safety Report 12405312 (Version 2)
Quarter: 2016Q3

REPORT INFORMATION
  Report Type: Spontaneous
  Country: US (occurrence: US)
  Receive Date: 20160525
  Receipt Date: 20160706
  Transmission Date: 20161109
  Serious: No
  Sender: FDA-Public Use
  Company Number: US-ACTELION-A-US2016-136569

PATIENT
  Age: 38 Year
  Sex: Female

DRUGS (5)
  1. OPSUMIT [Suspect]
     Active Substance: MACITENTAN
     Indication: PULMONARY ARTERIAL HYPERTENSION
     Dosage: 10 MG, UNK
     Route: 048
     Dates: start: 20150109
  2. TORSEMIDE. [Concomitant]
     Active Substance: TORSEMIDE
  3. WARFARIN SODIUM. [Concomitant]
     Active Substance: WARFARIN SODIUM
  4. DIGOXIN. [Concomitant]
     Active Substance: DIGOXIN
  5. VELETRI [Suspect]
     Active Substance: EPOPROSTENOL
     Indication: PULMONARY ARTERIAL HYPERTENSION
     Dosage: 35 NG/KG, PER MIN
     Route: 042
     Dates: start: 20150501

REACTIONS (3)
  - International normalised ratio increased [Unknown]
  - Catheter site haemorrhage [Unknown]
  - Catheter placement [Recovered/Resolved]

NARRATIVE: CASE EVENT DATE: 20160506
